FAERS Safety Report 5885050-0 (Version None)
Quarter: 2008Q3

REPORT INFORMATION
  Report Type: 
  Country: None (occurrence: None)
  Receive Date: 20080915
  Receipt Date: 20080915
  Transmission Date: 20090109
  Serious: Yes (Hospitalization)
  Sender: FDA-Public Use
  Company Number: None

PATIENT
  Sex: Female
  Weight: 59 kg

DRUGS (2)
  1. DASATINIB [Suspect]
     Indication: CHONDROSARCOMA
     Dosage: 70 MG BID PO; 50 MG BID PO
     Route: 048
     Dates: start: 20080605, end: 20080908
  2. DASATINIB [Suspect]
     Indication: CHONDROSARCOMA
     Dosage: 70 MG BID PO; 50 MG BID PO
     Route: 048
     Dates: start: 20080909, end: 20080909

REACTIONS (2)
  - DEEP VEIN THROMBOSIS [None]
  - PAIN [None]
